FAERS Safety Report 4493431-5 (Version None)
Quarter: 2004Q4

REPORT INFORMATION
  Report Type: 
  Country: None (occurrence: None)
  Receive Date: 20041102
  Receipt Date: 20041025
  Transmission Date: 20050328
  Serious: Yes (Death)
  Sender: FDA-Public Use
  Company Number: 2004238740US

PATIENT
  Age: 59 Year
  Sex: Female
  Weight: 59.9 kg

DRUGS (6)
  1. CAMPTOSAR [Suspect]
     Indication: SMALL CELL LUNG CANCER STAGE UNSPECIFIED
     Dosage: 79 MG (50 MG/M2) ON D1+8 Q21D
     Dates: start: 20041004, end: 20041004
  2. COMPARATOR-CARBOPLASTIN (CARBOPLATIN) INJECTION [Suspect]
     Indication: SMALL CELL LUNG CANCER STAGE UNSPECIFIED
     Dosage: 483 MG (AUC 5) ON D1 Q21 DAYS
     Dates: start: 20041004, end: 20041004
  3. LASIX [Concomitant]
  4. K-DUR 10 [Concomitant]
  5. MORPHINE [Concomitant]
  6. PEPCID [Concomitant]

REACTIONS (4)
  - FATIGUE [None]
  - NEUTROPENIA [None]
  - PAIN [None]
  - WHITE BLOOD CELL COUNT DECREASED [None]
